FAERS Safety Report 10039143 (Version 1)
Quarter: 2014Q1

REPORT INFORMATION
  Report Type: Spontaneous
  Country: FR (occurrence: FR)
  Receive Date: 20140326
  Receipt Date: 20140326
  Transmission Date: 20141002
  Serious: Yes (Disabling)
  Sender: FDA-Public Use
  Company Number: PHHY2014FR034750

PATIENT
  Age: 67 Year
  Sex: Male

DRUGS (1)
  1. ZOMETA [Suspect]
     Indication: METASTASES TO BONE
     Dosage: 3.5 MG, ONCE A MONTH
     Route: 042
     Dates: start: 20100801, end: 20140102

REACTIONS (2)
  - Mucocutaneous ulceration [Not Recovered/Not Resolved]
  - Osteonecrosis [Not Recovered/Not Resolved]
